FAERS Safety Report 8572444-8 (Version None)
Quarter: 2012Q3

REPORT INFORMATION
  Report Type: 
  Country: None (occurrence: None)
  Receive Date: 20120806
  Receipt Date: 20120726
  Transmission Date: 20120928
  Serious: Yes (Other)
  Sender: FDA-Public Use
  Company Number: GB-ASTRAZENECA-2012SE53187

PATIENT
  Age: 74 Year
  Sex: Female
  Weight: 62 kg

DRUGS (2)
  1. ZOSTAVAX [Suspect]
     Indication: IMMUNISATION
     Route: 065
     Dates: start: 20120319, end: 20120319
  2. FELODIPINE [Suspect]
     Indication: HYPERTENSION
     Route: 048
     Dates: end: 20120529

REACTIONS (5)
  - PRURITUS [None]
  - SKIN IRRITATION [None]
  - ERYTHEMA [None]
  - FUNGAL INFECTION [None]
  - OEDEMA PERIPHERAL [None]
